FAERS Safety Report 6996932-0 (Version None)
Quarter: 2010Q3

REPORT INFORMATION
  Report Type: 
  Country: None (occurrence: None)
  Receive Date: 20100918
  Receipt Date: 20090818
  Transmission Date: 20110219
  Serious: No
  Sender: FDA-Public Use
  Company Number: US-WYE-H10629509

PATIENT
  Sex: Female

DRUGS (1)
  1. EFFEXOR XR [Suspect]
     Dosage: HAD TAKEN 75 MG DAILY AND 150 MG DAILY (DATES OF THERAPY UNKNOWN)
     Route: 048
     Dates: end: 20080101

REACTIONS (1)
  - DRUG EXPOSURE DURING PREGNANCY [None]
